FAERS Safety Report 19702543 (Version 1)
Quarter: 2021Q3

REPORT INFORMATION
  Report Type: Spontaneous
  Country: US (occurrence: US)
  Receive Date: 20210815
  Receipt Date: 20210815
  Transmission Date: 20211014
  Serious: Yes (Death, Hospitalization, Other)
  Sender: FDA-Public Use
  Company Number: US-SPECGX-T202101697

PATIENT
  Sex: Male

DRUGS (20)
  1. CAFFEINE. [Suspect]
     Active Substance: CAFFEINE
     Indication: PRODUCT USED FOR UNKNOWN INDICATION
     Dosage: UNK
     Route: 065
  2. VIVITROL [Suspect]
     Active Substance: NALTREXONE
     Dosage: UNK
     Route: 065
     Dates: start: 20160314, end: 20160314
  3. VIVITROL [Suspect]
     Active Substance: NALTREXONE
     Dosage: UNK
     Dates: start: 20180219, end: 20180219
  4. VIVITROL [Suspect]
     Active Substance: NALTREXONE
     Dosage: UNK
     Dates: start: 20180320, end: 20180320
  5. COCAINE [Suspect]
     Active Substance: COCAINE
     Indication: PRODUCT USED FOR UNKNOWN INDICATION
     Dosage: UNK
     Route: 065
  6. VIVITROL [Suspect]
     Active Substance: NALTREXONE
     Dosage: UNK
     Route: 065
     Dates: start: 20160922, end: 20160922
  7. VIVITROL [Suspect]
     Active Substance: NALTREXONE
     Dosage: UNK
     Route: 065
     Dates: start: 20170116, end: 20170116
  8. OXYCODONE [Suspect]
     Active Substance: OXYCODONE
     Indication: ARTHRALGIA
     Dosage: 150 MILLIGRAM, QD
     Route: 065
     Dates: start: 2011
  9. VIVITROL [Suspect]
     Active Substance: NALTREXONE
     Indication: DRUG DEPENDENCE
     Dosage: UNK
     Route: 065
     Dates: start: 20150622, end: 20150622
  10. VIVITROL [Suspect]
     Active Substance: NALTREXONE
     Dosage: UNK
     Route: 065
     Dates: start: 20161020, end: 20161020
  11. ALCOHOL. [Suspect]
     Active Substance: ALCOHOL
     Indication: PRODUCT USED FOR UNKNOWN INDICATION
     Dosage: UNK
     Route: 065
  12. VIVITROL [Suspect]
     Active Substance: NALTREXONE
     Dosage: UNK
     Route: 065
     Dates: start: 20171007, end: 20171007
  13. VIVITROL [Suspect]
     Active Substance: NALTREXONE
     Dosage: UNK
     Route: 065
     Dates: start: 20180122, end: 20180122
  14. HEROIN [Suspect]
     Active Substance: DIAMORPHINE
     Indication: PRODUCT USED FOR UNKNOWN INDICATION
     Dosage: UNK
     Route: 065
  15. NICOTINE. [Suspect]
     Active Substance: NICOTINE
     Indication: PRODUCT USED FOR UNKNOWN INDICATION
     Dosage: UNK
     Route: 065
  16. VIVITROL [Suspect]
     Active Substance: NALTREXONE
     Dosage: UNK
     Route: 065
     Dates: start: 20171205, end: 20171205
  17. BUPROPION. [Concomitant]
     Active Substance: BUPROPION
     Indication: DEPRESSION
     Dosage: 100 MILLIGRAM
     Route: 065
     Dates: start: 20170406, end: 20170809
  18. DEXTROAMPHET SACCHARAT, AMPHET ASPARTATE, DEXTROAMPHET SULFATE AND AMPHET SULFAT [Suspect]
     Active Substance: AMPHETAMINE ASPARTATE\AMPHETAMINE SULFATE\DEXTROAMPHETAMINE SACCHARATE\DEXTROAMPHETAMINE SULFATE
     Indication: PRODUCT USED FOR UNKNOWN INDICATION
     Dosage: UNK
     Route: 065
  19. CANNABIS [Suspect]
     Active Substance: CANNABIS SATIVA SUBSP. INDICA TOP
     Indication: PRODUCT USED FOR UNKNOWN INDICATION
     Dosage: UNK
     Route: 065
  20. VIVITROL [Suspect]
     Active Substance: NALTREXONE
     Dosage: UNK
     Route: 065
     Dates: start: 20170809, end: 20170809

REACTIONS (9)
  - Dependence [Unknown]
  - Drug use disorder [Unknown]
  - Sleep disorder [Unknown]
  - Drug withdrawal syndrome [Unknown]
  - Weight decreased [Unknown]
  - Overdose [Fatal]
  - Toxicity to various agents [Fatal]
  - Stress [Unknown]
  - Fatigue [Unknown]
